FAERS Safety Report 20689290 (Version 3)
Quarter: 2022Q3

REPORT INFORMATION
  Report Type: Spontaneous
  Country: JP (occurrence: JP)
  Receive Date: 20220408
  Receipt Date: 20220715
  Transmission Date: 20221026
  Serious: Yes (Hospitalization)
  Sender: FDA-Public Use
  Company Number: JP-GLAXOSMITHKLINE-JP2022JPN059756

PATIENT

DRUGS (2)
  1. SOTROVIMAB [Suspect]
     Active Substance: SOTROVIMAB
     Indication: Pyrexia
     Dosage: 500 MG
     Route: 042
     Dates: start: 20220114, end: 20220114
  2. COMIRNATY [Suspect]
     Active Substance: TOZINAMERAN
     Dosage: UNK

REACTIONS (2)
  - COVID-19 [Unknown]
  - Exposure during pregnancy [Unknown]
